FAERS Safety Report 6113860-3 (Version None)
Quarter: 2009Q1

REPORT INFORMATION
  Report Type: 
  Country: None (occurrence: None)
  Receive Date: 20090312
  Receipt Date: 20090306
  Transmission Date: 20090719
  Serious: Yes (Hospitalization)
  Sender: FDA-Public Use
  Company Number: US-ABBOTT-08P-163-0478752-00

PATIENT
  Sex: Female
  Weight: 80.812 kg

DRUGS (10)
  1. HUMIRA [Suspect]
     Indication: RHEUMATOID ARTHRITIS
     Route: 058
     Dates: start: 20080409
  2. HUMIRA [Suspect]
     Dosage: ONE VERY TWO WEEKS, SYRINGE
     Route: 058
     Dates: start: 20040101, end: 20080409
  3. ELAVIL [Concomitant]
     Indication: SLEEP DISORDER THERAPY
     Route: 048
  4. ZETIA [Concomitant]
     Indication: ARTERIOSCLEROSIS
     Route: 048
  5. EVOXAC [Concomitant]
     Indication: SJOGREN'S SYNDROME
  6. FUROSEMIDE [Concomitant]
     Indication: DIURETIC THERAPY
     Route: 048
  7. METFORMIN HCL [Concomitant]
     Indication: DIABETES MELLITUS
     Route: 048
  8. METHOTREXATE [Concomitant]
     Indication: RHEUMATOID ARTHRITIS
     Route: 048
  9. ACTONEL [Concomitant]
     Indication: OSTEOPOROSIS
     Route: 048
  10. GLIPIZIDE [Concomitant]
     Indication: DIABETES MELLITUS
     Route: 048

REACTIONS (2)
  - LOWER RESPIRATORY TRACT INFLAMMATION [None]
  - ORTHOPNOEA [None]
